FAERS Safety Report 13633372 (Version 1)
Quarter: 2017Q2

REPORT INFORMATION
  Report Type: Spontaneous
  Country: US (occurrence: US)
  Receive Date: 20170531
  Receipt Date: 20170531
  Transmission Date: 20170830
  Serious: No
  Sender: FDA-Public Use
  Company Number: US-ASTELLAS-1536929

PATIENT
  Sex: Female

DRUGS (7)
  1. FOLIC ACID. [Concomitant]
     Active Substance: FOLIC ACID
  2. LIPITOR [Concomitant]
     Active Substance: ATORVASTATIN CALCIUM
  3. NEURONTIN [Concomitant]
     Active Substance: GABAPENTIN
  4. FERROUS SULFATE. [Concomitant]
     Active Substance: FERROUS SULFATE
  5. METFORMIN HYDROCHLORIDE. [Concomitant]
     Active Substance: METFORMIN HYDROCHLORIDE
  6. NORCO [Concomitant]
     Active Substance: ACETAMINOPHEN\HYDROCODONE BITARTRATE
  7. TARCEVA [Suspect]
     Active Substance: ERLOTINIB HYDROCHLORIDE
     Indication: LUNG NEOPLASM MALIGNANT
     Route: 048
     Dates: start: 20150203

REACTIONS (3)
  - Dysgeusia [Unknown]
  - Diarrhoea [Unknown]
  - Dyspepsia [Unknown]
